FAERS Safety Report 14790263 (Version 1)
Quarter: 2018Q2

REPORT INFORMATION
  Report Type: Report from Study
  Country: MX (occurrence: MX)
  Receive Date: 20180423
  Receipt Date: 20180423
  Transmission Date: 20180711
  Serious: Yes (Other)
  Sender: FDA-Public Use
  Company Number: MX-AMGEN-MEXSL2016183454

PATIENT
  Age: 47 Year
  Sex: Female

DRUGS (6)
  1. VECTIBIX [Suspect]
     Active Substance: PANITUMUMAB
     Indication: COLORECTAL CANCER METASTATIC
     Dosage: 500 MG, EVERY 15 DAYS
     Route: 042
     Dates: start: 20161114, end: 201705
  2. OXALIPLATIN. [Concomitant]
     Active Substance: OXALIPLATIN
     Indication: METASTASES TO VAGINA
  3. OXALIPLATIN. [Concomitant]
     Active Substance: OXALIPLATIN
     Indication: COLORECTAL CANCER METASTATIC
     Dosage: UNK
  4. VECTIBIX [Suspect]
     Active Substance: PANITUMUMAB
     Indication: METASTASES TO VAGINA
     Dosage: 500 MG, EVERY 15 DAYS
     Route: 042
     Dates: start: 201710
  5. FLUOROURACIL. [Concomitant]
     Active Substance: FLUOROURACIL
     Indication: COLORECTAL CANCER METASTATIC
     Dosage: UNK
  6. FLUOROURACIL. [Concomitant]
     Active Substance: FLUOROURACIL
     Indication: METASTASES TO VAGINA

REACTIONS (10)
  - Secretion discharge [Not Recovered/Not Resolved]
  - Nausea [Unknown]
  - Surgery [Unknown]
  - Tachycardia [Unknown]
  - Skin reaction [Not Recovered/Not Resolved]
  - Chest discomfort [Unknown]
  - Dry skin [Not Recovered/Not Resolved]
  - Haemorrhagic urticaria [Not Recovered/Not Resolved]
  - Chest pain [Unknown]
  - Acne [Not Recovered/Not Resolved]

NARRATIVE: CASE EVENT DATE: 201611
